FAERS Safety Report 7725179-5 (Version None)
Quarter: 2011Q3

REPORT INFORMATION
  Report Type: 
  Country: None (occurrence: None)
  Receive Date: 20110901
  Receipt Date: 20110830
  Transmission Date: 20111222
  Serious: Yes (Hospitalization, Disabling, Other)
  Sender: FDA-Public Use
  Company Number: US-MERCK-1106USA02212

PATIENT
  Age: 31 Year
  Sex: Female

DRUGS (2)
  1. FOSAMAX [Suspect]
     Indication: OSTEOPOROSIS
     Route: 048
     Dates: start: 19961201, end: 20100601
  2. BONIVA [Suspect]
     Indication: OSTEOPOROSIS
     Route: 065
     Dates: start: 20101001, end: 20110201

REACTIONS (20)
  - TIBIA FRACTURE [None]
  - SPINAL FRACTURE [None]
  - UTERINE DISORDER [None]
  - FOOT FRACTURE [None]
  - VITAMIN D DEFICIENCY [None]
  - FRACTURE [None]
  - STRESS FRACTURE [None]
  - LOW TURNOVER OSTEOPATHY [None]
  - DEPRESSION [None]
  - ADVERSE EVENT [None]
  - BARRETT'S OESOPHAGUS [None]
  - OSTEOPOROSIS [None]
  - ARTHROPATHY [None]
  - FALL [None]
  - CYST [None]
  - TOOTH DISORDER [None]
  - GASTROOESOPHAGEAL REFLUX DISEASE [None]
  - CALCIUM DEFICIENCY [None]
  - BLADDER DISORDER [None]
  - GASTRITIS [None]
